FAERS Safety Report 8360962-7 (Version None)
Quarter: 2012Q1

REPORT INFORMATION
  Report Type: 
  Country: None (occurrence: None)
  Receive Date: 20120323
  Receipt Date: 20110211
  Transmission Date: 20120608
  Serious: Yes (Hospitalization, Other)
  Sender: FDA-Public Use
  Company Number: 163-21880-11012400

PATIENT
  Age: 74 Year
  Sex: Male

DRUGS (5)
  1. CARDURA [Concomitant]
  2. VYTORIN [Concomitant]
  3. NORVASC [Concomitant]
  4. REVLIMID [Suspect]
     Indication: MULTIPLE MYELOMA
     Dosage: 25 MG, 1 IN 1 D, PO
     Route: 048
     Dates: start: 20101021, end: 20110101
  5. METOPROLOL TARTRATE [Concomitant]

REACTIONS (3)
  - WHITE BLOOD CELL COUNT DECREASED [None]
  - ASTHENIA [None]
  - ANAEMIA [None]
